FAERS Safety Report 5400164-7 (Version None)
Quarter: 2007Q3

REPORT INFORMATION
  Report Type: 
  Country: None (occurrence: None)
  Receive Date: 20070730
  Receipt Date: 20070720
  Transmission Date: 20080115
  Serious: Yes (Hospitalization)
  Sender: FDA-Public Use
  Company Number: IT-AMGEN-UK235675

PATIENT

DRUGS (1)
  1. NESPO [Suspect]
     Indication: ANAEMIA
     Route: 058
     Dates: start: 20070523, end: 20070620

REACTIONS (3)
  - HYPERTENSION [None]
  - POLYCYTHAEMIA [None]
  - RENAL FAILURE [None]
